FAERS Safety Report 25567801 (Version 1)
Quarter: 2025Q3

REPORT INFORMATION
  Report Type: Spontaneous
  Country: US (occurrence: None)
  Receive Date: 20250716
  Receipt Date: 20250716
  Transmission Date: 20251020
  Serious: Yes (Hospitalization)
  Sender: FDA-CTU
  Company Number: None

PATIENT
  Age: 74 Year
  Sex: Male

DRUGS (23)
  1. MYCOPHENOLATE MOFETIL [Suspect]
     Active Substance: MYCOPHENOLATE MOFETIL
     Indication: Lung transplant
     Dosage: 1000 MG TWICE A DAY ORAL ?
     Route: 048
  2. TACROLIMUS [Suspect]
     Active Substance: TACROLIMUS
     Indication: Lung transplant
     Dosage: 1 MG TWICE A DAY ORAL ?
     Route: 048
  3. NIVESTYM [Suspect]
     Active Substance: FILGRASTIM-AAFI
  4. LOKELMA [Suspect]
     Active Substance: SODIUM ZIRCONIUM CYCLOSILICATE
  5. prednisone 5 mg and 10 mg tablet [Concomitant]
     Dates: start: 20240828
  6. calcium 600 + vitamin D (400 U) tablet [Concomitant]
     Dates: start: 20240828
  7. clobetasol propionate 0.05 % ointment [Concomitant]
  8. AZITHROMYCIN ANHYDROUS [Concomitant]
     Active Substance: AZITHROMYCIN ANHYDROUS
     Dates: start: 20250213
  9. melatonin 3 mg tablet [Concomitant]
     Dates: start: 20240828
  10. TAMSULOSIN HYDROCHLORIDE [Concomitant]
     Active Substance: TAMSULOSIN HYDROCHLORIDE
     Dates: start: 20240828
  11. tramadol 50 mg tablet [Concomitant]
     Dates: start: 20250630
  12. Eliquis 2.5 mg tablet [Concomitant]
     Dates: start: 20250620
  13. doxazosin 1 mg tablet [Concomitant]
     Dates: start: 20250620
  14. FLUTICASONE [Concomitant]
     Active Substance: FLUTICASONE
     Dates: start: 20250127
  15. posaconazole 100 mg DR tablet [Concomitant]
     Dates: start: 20250620
  16. ROSUVASTATIN [Concomitant]
     Active Substance: ROSUVASTATIN
     Dates: start: 20250611
  17. OMEPRAZOLE [Concomitant]
     Active Substance: OMEPRAZOLE
     Dates: start: 20240828
  18. FUROSEMIDE [Concomitant]
     Active Substance: FUROSEMIDE
     Dates: start: 20240828
  19. VALACYCLOVIR HYDROCHLORIDE [Concomitant]
     Active Substance: VALACYCLOVIR HYDROCHLORIDE
     Dates: start: 20250213
  20. MG plus protein 133 mg tablet [Concomitant]
     Dates: start: 20240828
  21. Breo Ellipta 200-25 mcg inhaler [Concomitant]
     Dates: start: 20250321
  22. Tab-a-vite with iron tablet [Concomitant]
     Dates: start: 20240828
  23. metoprolol ER succinate 100 mg tablet [Concomitant]
     Dates: start: 20240829

REACTIONS (2)
  - Lung transplant [None]
  - Oesophageal candidiasis [None]

NARRATIVE: CASE EVENT DATE: 20250706
